FAERS Safety Report 8702895 (Version 2)
Quarter: 2017Q4

REPORT INFORMATION
  Report Type: Spontaneous
  Country: US (occurrence: US)
  Receive Date: 20120803
  Receipt Date: 20171229
  Transmission Date: 20180321
  Serious: Yes (Hospitalization, Other)
  Sender: FDA-Public Use
  Company Number: US-009507513-1207USA008663

PATIENT
  Sex: Female

DRUGS (4)
  1. FOSAMAX [Suspect]
     Active Substance: ALENDRONATE SODIUM
     Indication: OSTEOPOROSIS
     Dosage: 70 MG, QW
     Route: 048
     Dates: start: 2005
  2. ALENDRONATE SODIUM. [Suspect]
     Active Substance: ALENDRONATE SODIUM
     Indication: OSTEOPENIA
     Dosage: UNK
     Route: 048
     Dates: start: 199006, end: 201007
  3. FOSAMAX [Suspect]
     Active Substance: ALENDRONATE SODIUM
     Indication: OSTEOPENIA
     Dosage: UNK
     Route: 048
     Dates: start: 199006, end: 201007
  4. ALENDRONATE SODIUM. [Suspect]
     Active Substance: ALENDRONATE SODIUM
     Indication: OSTEOPOROSIS
     Dosage: 70 MG, QW
     Route: 048
     Dates: start: 20100812, end: 20110711

REACTIONS (25)
  - Femur fracture [Unknown]
  - Foot fracture [Unknown]
  - Drug ineffective [Unknown]
  - Anxiety disorder [Unknown]
  - Depression [Unknown]
  - Arthralgia [Unknown]
  - Appendicectomy [Unknown]
  - Vitamin D deficiency [Unknown]
  - Hypertension [Unknown]
  - Fall [Unknown]
  - Urinary tract infection [Unknown]
  - Nephrolithiasis [Unknown]
  - Left ventricular dysfunction [Unknown]
  - Nausea [Recovered/Resolved]
  - Iron deficiency anaemia [Unknown]
  - Femur fracture [Unknown]
  - Femur fracture [Recovered/Resolved]
  - Anaemia postoperative [Recovering/Resolving]
  - Fall [Unknown]
  - Arthralgia [Unknown]
  - Wrist fracture [Unknown]
  - Tonsillectomy [Unknown]
  - Fall [Unknown]
  - Joint injury [Unknown]
  - Vomiting [Recovered/Resolved]

NARRATIVE: CASE EVENT DATE: 2007
